FAERS Safety Report 25471268 (Version 1)
Quarter: 2025Q2

REPORT INFORMATION
  Report Type: Spontaneous
  Country: CN (occurrence: CN)
  Receive Date: 20250624
  Receipt Date: 20250624
  Transmission Date: 20250717
  Serious: Yes (Hospitalization)
  Sender: JIANGSU HENGRUI
  Company Number: CN-JIANGSU HENGRUI PHARMACEUTICALS CO., LTD.-H2025220330

PATIENT
  Age: 70 Year
  Weight: 70 kg

DRUGS (3)
  1. PACLITAXEL [Suspect]
     Active Substance: PACLITAXEL
     Indication: Oesophageal carcinoma
     Dosage: 200 MG, Q3W
  2. GIMERACIL\OTERACIL\TEGAFUR [Suspect]
     Active Substance: GIMERACIL\OTERACIL POTASSIUM\TEGAFUR
     Indication: Oesophageal carcinoma
  3. SINTILIMAB [Suspect]
     Active Substance: SINTILIMAB
     Indication: Oesophageal carcinoma
     Dosage: 200 MG, Q3W

REACTIONS (2)
  - Pruritus [Recovering/Resolving]
  - Skin disorder [Recovering/Resolving]
